FAERS Safety Report 6724825-2 (Version None)
Quarter: 2010Q2

REPORT INFORMATION
  Report Type: 
  Country: None (occurrence: None)
  Receive Date: 20100513
  Receipt Date: 20100513
  Transmission Date: 20101027
  Serious: Yes (Hospitalization, Other)
  Sender: FDA-Public Use
  Company Number: None

PATIENT
  Age: 49 Year
  Sex: Male
  Weight: 104.3273 kg

DRUGS (2)
  1. CYMBALTA [Suspect]
     Indication: DEPRESSION
     Dosage: 30MG 2X PO
     Route: 048
     Dates: start: 20090105, end: 20100401
  2. CYMBALTA [Suspect]
     Indication: PAIN
     Dosage: 30MG 2X PO
     Route: 048
     Dates: start: 20090105, end: 20100401

REACTIONS (5)
  - NIGHT SWEATS [None]
  - ORGASM ABNORMAL [None]
  - QUALITY OF LIFE DECREASED [None]
  - STUPOR [None]
  - TREMOR [None]
